FAERS Safety Report 8242886-9 (Version None)
Quarter: 2012Q1

REPORT INFORMATION
  Report Type: 
  Country: None (occurrence: None)
  Receive Date: 20120329
  Receipt Date: 20120327
  Transmission Date: 20120608
  Serious: Yes (Hospitalization, Other)
  Sender: FDA-Public Use
  Company Number: US-PFIZER INC-2012078711

PATIENT
  Sex: Male
  Weight: 86.168 kg

DRUGS (8)
  1. LYRICA [Suspect]
     Indication: DIABETIC NEUROPATHY
     Dosage: 100 MG, 3X/DAY
     Route: 048
     Dates: start: 20111201
  2. LYRICA [Suspect]
     Dosage: 150 MG, 3X/DAY
     Route: 048
  3. LYRICA [Suspect]
     Dosage: UNK
     Route: 048
  4. GABAPENTIN [Suspect]
     Indication: DIABETIC NEUROPATHY
     Dosage: 600 MG, 3X/DAY
     Dates: end: 20111201
  5. JANUMET [Concomitant]
     Indication: TYPE 2 DIABETES MELLITUS
     Dosage: SITAGLIPTIN 50 MG/METFORMIN HYDROCHLORIDE 500 MG, 2X/DAY
     Route: 048
  6. GEMFIBROZIL [Concomitant]
     Indication: BLOOD CHOLESTEROL INCREASED
     Dosage: 600 MG, 2X/DAY
  7. GEMFIBROZIL [Concomitant]
     Indication: BLOOD TRIGLYCERIDES INCREASED
  8. GLIPIZIDE [Concomitant]
     Indication: TYPE 2 DIABETES MELLITUS
     Dosage: 10 MG, 2X/DAY
     Route: 048

REACTIONS (2)
  - DRUG INEFFECTIVE [None]
  - CEREBROVASCULAR ACCIDENT [None]
